FAERS Safety Report 15520133 (Version 1)
Quarter: 2018Q4

REPORT INFORMATION
  Report Type: Report from Study
  Country: US (occurrence: US)
  Receive Date: 20181017
  Receipt Date: 20181017
  Transmission Date: 20190205
  Serious: No
  Sender: FDA-Public Use
  Company Number: PHEH2018US043778

PATIENT
  Age: 14 Year
  Sex: Female
  Weight: 77.11 kg

DRUGS (2)
  1. ILARIS [Suspect]
     Active Substance: CANAKINUMAB
     Indication: CRYOPYRIN ASSOCIATED PERIODIC SYNDROME
     Dosage: 150 MG, EVERY 8 WEEKS (BENEATH THE SKIN)
     Route: 058
  2. ILARIS [Suspect]
     Active Substance: CANAKINUMAB
     Dosage: 150 MG, EVERY 6 WEEKS (BENEATH THE SKIN)
     Route: 058

REACTIONS (3)
  - Drug effect incomplete [Not Recovered/Not Resolved]
  - Dermatitis contact [Recovering/Resolving]
  - Rash pruritic [Not Recovered/Not Resolved]
